FAERS Safety Report 24574450 (Version 6)
Quarter: 2025Q1

REPORT INFORMATION
  Report Type: Report from Study
  Country: CA (occurrence: CA)
  Receive Date: 20241104
  Receipt Date: 20250220
  Transmission Date: 20250409
  Serious: Yes (Hospitalization, Other)
  Sender: NOVARTIS
  Company Number: CA-002147023-NVSC2024CA135089

PATIENT
  Age: 48 Year
  Sex: Female
  Weight: 78.7 kg

DRUGS (4)
  1. KISQALI [Suspect]
     Active Substance: RIBOCICLIB
     Indication: Breast cancer metastatic
     Route: 048
     Dates: start: 20240508
  2. KISQALI [Suspect]
     Active Substance: RIBOCICLIB
     Route: 048
     Dates: start: 20240528
  3. LETROZOLE [Concomitant]
     Active Substance: LETROZOLE
     Indication: Metastasis
     Dosage: 2.5 MG, QD
     Route: 048
     Dates: start: 20240508
  4. PREGABALIN [Concomitant]
     Active Substance: PREGABALIN
     Indication: Product used for unknown indication
     Route: 065

REACTIONS (12)
  - Cholecystitis acute [Recovered/Resolved]
  - Abdominal pain [Recovered/Resolved]
  - Bone cancer [Unknown]
  - Night sweats [Recovered/Resolved]
  - Mood swings [Recovering/Resolving]
  - Mobility decreased [Unknown]
  - Alopecia [Unknown]
  - Nausea [Recovered/Resolved]
  - Dysstasia [Unknown]
  - Arthralgia [Unknown]
  - Bone pain [Unknown]
  - Discomfort [Unknown]

NARRATIVE: CASE EVENT DATE: 20241001
